FAERS Safety Report 5310203-X (Version None)
Quarter: 2007Q2

REPORT INFORMATION
  Report Type: 
  Country: None (occurrence: None)
  Receive Date: 20070423
  Receipt Date: 20070412
  Transmission Date: 20071010
  Serious: Yes (Other)
  Sender: FDA-Public Use
  Company Number: GXKR2007MY03428

PATIENT
  Age: 17 Year
  Sex: Male

DRUGS (3)
  1. METHOTREXATE [Suspect]
     Indication: LEUKAEMIC LYMPHOMA
     Dosage: SEE IMAGE
     Route: 037
     Dates: start: 20050201
  2. CYTARABINE [Suspect]
     Indication: LEUKAEMIC LYMPHOMA
     Dosage: 40 MG, ONCE/SINGLE, INTRATHECAL
     Route: 037
     Dates: start: 20050201
  3. DEXAMETHASONE [Suspect]
     Indication: LEUKAEMIC LYMPHOMA
     Dosage: SEE IMAGE
     Route: 037

REACTIONS (8)
  - HYPERTENSION [None]
  - HYPOAESTHESIA [None]
  - MYELOPATHY [None]
  - NEUROTOXICITY [None]
  - PARAESTHESIA [None]
  - PARAPLEGIA [None]
  - SENSORY LOSS [None]
  - TACHYCARDIA [None]
